FAERS Safety Report 18316975 (Version 1)
Quarter: 2020Q3

REPORT INFORMATION
  Report Type: Spontaneous
  Country: US (occurrence: US)
  Receive Date: 20200928
  Receipt Date: 20200928
  Transmission Date: 20201103
  Serious: Yes (Hospitalization, Other)
  Sender: FDA-Public Use
  Company Number: US-HIKMA PHARMACEUTICALS USA INC.-US-H14001-20-04328

PATIENT
  Age: 56 Year
  Sex: Male

DRUGS (8)
  1. PREDNISONE. [Concomitant]
     Active Substance: PREDNISONE
     Indication: IMMUNOSUPPRESSION
     Route: 065
  2. ASPIRIN. [Concomitant]
     Active Substance: ASPIRIN
     Indication: PRODUCT USED FOR UNKNOWN INDICATION
     Route: 065
  3. PANTOPRAZOLE [Concomitant]
     Active Substance: PANTOPRAZOLE
     Indication: PROPHYLAXIS AGAINST GASTROINTESTINAL ULCER
     Route: 065
  4. PREDNISONE. [Concomitant]
     Active Substance: PREDNISONE
     Route: 065
  5. MYCOPHENOLATE MOFETIL. [Suspect]
     Active Substance: MYCOPHENOLATE MOFETIL
     Indication: IMMUNOSUPPRESSION
     Route: 065
  6. MYCOPHENOLATE MOFETIL. [Suspect]
     Active Substance: MYCOPHENOLATE MOFETIL
     Route: 065
  7. TACROLIMUS. [Concomitant]
     Active Substance: TACROLIMUS
     Indication: IMMUNOSUPPRESSION
     Route: 065
  8. AZATHIOPRINE. [Concomitant]
     Active Substance: AZATHIOPRINE
     Indication: PRODUCT USED FOR UNKNOWN INDICATION
     Dosage: UNKNOWN
     Route: 065

REACTIONS (16)
  - Melaena [Unknown]
  - Vomiting [Recovering/Resolving]
  - Asthenia [Recovered/Resolved]
  - Nausea [Recovering/Resolving]
  - Condition aggravated [Recovered/Resolved]
  - Gastritis erosive [Unknown]
  - Abdominal pain upper [Recovered/Resolved]
  - Weight decreased [Recovered/Resolved]
  - Thrombocytosis [Unknown]
  - Aphthous ulcer [Recovered/Resolved]
  - Leukopenia [Recovered/Resolved]
  - Haemorrhoids [Unknown]
  - Gastrointestinal mucosal disorder [Unknown]
  - Gastric mucosal hypertrophy [Unknown]
  - Iron deficiency anaemia [Recovering/Resolving]
  - Decreased appetite [Recovered/Resolved]
